FAERS Safety Report 19995954 (Version 1)
Quarter: 2021Q4

REPORT INFORMATION
  Report Type: Spontaneous
  Country: US (occurrence: US)
  Receive Date: 20211025
  Receipt Date: 20211025
  Transmission Date: 20220303
  Serious: No
  Sender: FDA-Public Use
  Company Number: US-ENDO PHARMACEUTICALS INC-2021-012116

PATIENT
  Sex: Female
  Weight: 65.76 kg

DRUGS (1)
  1. QWO [Suspect]
     Active Substance: COLLAGENASE CLOSTRIDIUM HISTOLYTICUM-AAES
     Indication: Peau d^orange
     Dosage: UNK UNKNOWN, UNKNOWN (TREATMENT ONE)
     Route: 065
     Dates: start: 202108

REACTIONS (7)
  - Muscle spasms [Unknown]
  - Neuralgia [Not Recovered/Not Resolved]
  - Contusion [Recovered/Resolved]
  - Nodule [Recovering/Resolving]
  - Pain [Unknown]
  - Skin discolouration [Unknown]
  - Off label use [Recovered/Resolved]

NARRATIVE: CASE EVENT DATE: 20210101
